FAERS Safety Report 16677541 (Version 1)
Quarter: 2019Q3

REPORT INFORMATION
  Report Type: Spontaneous
  Country: CN (occurrence: CN)
  Receive Date: 20190807
  Receipt Date: 20190807
  Transmission Date: 20191004
  Serious: Yes (Other)
  Sender: FDA-Public Use
  Company Number: CN-PFIZER INC-2019332948

PATIENT
  Age: 67 Year
  Sex: Male
  Weight: 53 kg

DRUGS (2)
  1. TIGECYCLINE. [Suspect]
     Active Substance: TIGECYCLINE
     Indication: ANTI-INFECTIVE THERAPY
     Dosage: UNK
     Route: 041
     Dates: start: 20190719, end: 20190724
  2. SULPERAZON [Suspect]
     Active Substance: CEFOPERAZONE SODIUM\SULBACTAM SODIUM
     Indication: INFECTION
     Dosage: 3 G, 3X/DAY
     Route: 041
     Dates: start: 20190719, end: 20190724

REACTIONS (2)
  - Petechiae [Unknown]
  - Coagulopathy [Recovering/Resolving]

NARRATIVE: CASE EVENT DATE: 20190723
